FAERS Safety Report 8897818 (Version 1)
Quarter: 2012Q4

REPORT INFORMATION
  Report Type: 
  Country: GB (occurrence: GB)
  Receive Date: 20121109
  Receipt Date: 20121109
  Transmission Date: 20130627
  Serious: Yes (Death, Hospitalization)
  Sender: FDA-Public Use
  Company Number: GB-ELI_LILLY_AND_COMPANY-GB201211001474

PATIENT
  Age: 70 Year
  Sex: Female
  Weight: 45 kg

DRUGS (6)
  1. GEMZAR [Suspect]
     Indication: PANCREATIC CARCINOMA METASTATIC
     Dosage: 1000 mg/m2, UNK
     Dates: start: 20120815, end: 20120912
  2. ALENDRONATE [Concomitant]
  3. AMITRIPTYLINE [Concomitant]
  4. CALCICHEW D3 [Concomitant]
  5. DEXAMETHASONE [Concomitant]
  6. LANSOPRAZOLE [Concomitant]

REACTIONS (2)
  - Pneumonitis [Fatal]
  - Dyspnoea [Unknown]
